FAERS Safety Report 8621356-X (Version None)
Quarter: 2012Q3

REPORT INFORMATION
  Report Type: 
  Country: None (occurrence: None)
  Receive Date: 20120824
  Receipt Date: 20120816
  Transmission Date: 20120928
  Serious: Yes (Life-Threatening, Disabling, Other)
  Sender: FDA-Public Use
  Company Number: JP-ROCHE-1006094

PATIENT
  Sex: Female
  Weight: 49 kg

DRUGS (2)
  1. TAMOXIFEN CITRATE [Concomitant]
     Indication: BREAST CANCER METASTATIC
     Route: 048
     Dates: start: 20110905
  2. XELODA [Suspect]
     Indication: BREAST CANCER METASTATIC
     Dosage: 2 WEEKS ADMINISTRATION FOLLOWED BY 1 WEEK REST
     Route: 048
     Dates: start: 20110926, end: 20111009

REACTIONS (8)
  - DISSEMINATED INTRAVASCULAR COAGULATION [None]
  - STOMATITIS [None]
  - PALMAR-PLANTAR ERYTHRODYSAESTHESIA SYNDROME [None]
  - ALTERED STATE OF CONSCIOUSNESS [None]
  - CEREBRAL INFARCTION [None]
  - KETOACIDOSIS [None]
  - DIARRHOEA [None]
  - PANCYTOPENIA [None]
